FAERS Safety Report 14554766 (Version 1)
Quarter: 2018Q1

REPORT INFORMATION
  Report Type: Spontaneous
  Country: IT (occurrence: IT)
  Receive Date: 20180220
  Receipt Date: 20180220
  Transmission Date: 20180509
  Serious: Yes (Hospitalization)
  Sender: FDA-Public Use
  Company Number: PHHY2018IT022364

PATIENT
  Age: 66 Year
  Sex: Female

DRUGS (6)
  1. AMLODIPINE [Interacting]
     Active Substance: AMLODIPINE BESYLATE
     Indication: HYPERTENSION
     Dosage: 10 MG, UNK
     Route: 065
  2. CLINDAMYCIN. [Interacting]
     Active Substance: CLINDAMYCIN
     Indication: INFECTION
     Dosage: 600 MG, BID
     Route: 065
  3. BISOPROLOL [Suspect]
     Active Substance: BISOPROLOL
     Indication: HYPERTENSION
     Dosage: 5 MG, UNK
     Route: 065
  4. METFORMIN [Concomitant]
     Active Substance: METFORMIN HYDROCHLORIDE
     Indication: TYPE 2 DIABETES MELLITUS
     Dosage: 850 MG, TID
     Route: 065
  5. MINOCYCLINE [Interacting]
     Active Substance: MINOCYCLINE\MINOCYCLINE HYDROCHLORIDE
     Indication: INFECTION
     Dosage: 100 MG, BID
     Route: 065
  6. RIFAMPICIN [Interacting]
     Active Substance: RIFAMPIN
     Indication: INFECTION
     Dosage: 600 MG, BID
     Route: 065

REACTIONS (6)
  - Atrioventricular block complete [Recovering/Resolving]
  - Sensory disturbance [Recovering/Resolving]
  - Oedema peripheral [Recovering/Resolving]
  - Drug interaction [Unknown]
  - Acute kidney injury [Recovering/Resolving]
  - Toxicity to various agents [Recovering/Resolving]
